FAERS Safety Report 6426534-6 (Version None)
Quarter: 2009Q4

REPORT INFORMATION
  Report Type: 
  Country: None (occurrence: None)
  Receive Date: 20091030
  Receipt Date: 20091026
  Transmission Date: 20100525
  Serious: Yes (Hospitalization)
  Sender: FDA-Public Use
  Company Number: 2009SP030049

PATIENT
  Age: 3 Year
  Sex: Male
  Weight: 16.5 kg

DRUGS (3)
  1. BETAMETHASONE [Suspect]
     Indication: DRUG USE FOR UNKNOWN INDICATION
     Dosage: 40 GTT; BID; PO
     Route: 048
     Dates: start: 20090907, end: 20090908
  2. ADVIL [Suspect]
     Indication: PYREXIA
     Dosage: 1 DF; Q8H; PO
     Route: 048
     Dates: start: 20090903, end: 20090909
  3. ASPEGIC 1000 [Suspect]
     Indication: PYREXIA
     Dosage: 1 DF; TID; PO
     Route: 048
     Dates: start: 20090903, end: 20090908

REACTIONS (3)
  - DRUG ADMINISTRATION ERROR [None]
  - HEADACHE [None]
  - LYMPHADENOPATHY [None]
